FAERS Safety Report 6960822-X (Version None)
Quarter: 2010Q3

REPORT INFORMATION
  Report Type: 
  Country: None (occurrence: None)
  Receive Date: 20100901
  Receipt Date: 20100823
  Transmission Date: 20110219
  Serious: Yes (Death, Life-Threatening, Hospitalization, Other)
  Sender: FDA-Public Use
  Company Number: US-ROCHE-723554

PATIENT
  Sex: Male
  Weight: 68 kg

DRUGS (11)
  1. KLONOPIN [Suspect]
     Indication: PRODUCT USED FOR UNKNOWN INDICATION
     Route: 065
  2. DEPAKOTE [Suspect]
     Route: 048
     Dates: start: 20080901, end: 20090101
  3. DEPAKOTE [Suspect]
     Dosage: 9 DAYS WORTH OF DEPAKOTE IN ONE EVENING
     Route: 048
     Dates: start: 20090122, end: 20090122
  4. DEPAKOTE [Suspect]
     Route: 048
     Dates: start: 20090205, end: 20090209
  5. SEROQUEL [Suspect]
     Route: 048
     Dates: start: 20080901, end: 20090122
  6. SEROQUEL [Suspect]
     Dosage: 09 DAYS WORTH OF SEROQUEL IN ONE EVENING
     Route: 048
     Dates: start: 20090122, end: 20090122
  7. SEROQUEL [Suspect]
     Route: 048
     Dates: start: 20090205, end: 20090209
  8. ATIVAN [Suspect]
     Indication: PRODUCT USED FOR UNKNOWN INDICATION
     Route: 065
     Dates: start: 20090122, end: 20090122
  9. WELLBUTRIN [Concomitant]
  10. LAMICTAL [Concomitant]
  11. CITALOPRAM HYDROBROMIDE [Concomitant]
     Indication: DEPRESSION
     Route: 048

REACTIONS (14)
  - AGGRESSION [None]
  - AREFLEXIA [None]
  - ASPHYXIA [None]
  - COMA [None]
  - CRYING [None]
  - DEPRESSION [None]
  - DRUG TOXICITY [None]
  - EMOTIONAL DISTRESS [None]
  - FEAR [None]
  - LOSS OF CONSCIOUSNESS [None]
  - OVERDOSE [None]
  - SUICIDAL IDEATION [None]
  - SUICIDE ATTEMPT [None]
  - WEIGHT DECREASED [None]
